FAERS Safety Report 16608674 (Version 6)
Quarter: 2020Q1

REPORT INFORMATION
  Report Type: Spontaneous
  Country: US (occurrence: US)
  Receive Date: 20190722
  Receipt Date: 20200114
  Transmission Date: 20200409
  Serious: No
  Sender: FDA-Public Use
  Company Number: US-PFIZER INC-2019298262

PATIENT
  Sex: Female
  Weight: 61 kg

DRUGS (7)
  1. NEURONTIN [Suspect]
     Active Substance: GABAPENTIN
     Indication: PARAESTHESIA
     Dosage: UNK
     Dates: start: 2003
  2. NEURONTIN [Suspect]
     Active Substance: GABAPENTIN
     Dosage: 4 G, DAILY
  3. NEURONTIN [Suspect]
     Active Substance: GABAPENTIN
     Indication: PAIN IN EXTREMITY
     Dosage: 400 MG, UNK
  4. NEURONTIN [Suspect]
     Active Substance: GABAPENTIN
     Dosage: 5600 MG, DAILY
  5. NEURONTIN [Suspect]
     Active Substance: GABAPENTIN
     Dosage: UNK (DOSE REDUCTION)
  6. NEURONTIN [Suspect]
     Active Substance: GABAPENTIN
     Indication: POLYNEUROPATHY
     Dosage: 7200 MG, DAILY
  7. NEURONTIN [Suspect]
     Active Substance: GABAPENTIN
     Indication: NEUROPATHY PERIPHERAL
     Dosage: 5600 MG, DAILY (SEVEN 800MG TABLETS)

REACTIONS (5)
  - Product use in unapproved indication [Unknown]
  - Prescribed overdose [Unknown]
  - Off label use [Unknown]
  - Drug ineffective for unapproved indication [Unknown]
  - Drug effective for unapproved indication [Unknown]

NARRATIVE: CASE EVENT DATE: 2003
